FAERS Safety Report 17669688 (Version 1)
Quarter: 2020Q2

REPORT INFORMATION
  Report Type: Spontaneous
  Country: US (occurrence: US)
  Receive Date: 20200414
  Receipt Date: 20200414
  Transmission Date: 20200713
  Serious: No
  Sender: FDA-Public Use
  Company Number: None

PATIENT
  Age: 31 Year
  Sex: Male

DRUGS (1)
  1. GLEEVEC [Suspect]
     Active Substance: IMATINIB MESYLATE
     Route: 048
     Dates: start: 2020

REACTIONS (4)
  - Dizziness [None]
  - Drug interaction [None]
  - Nausea [None]
  - Dyspepsia [None]

NARRATIVE: CASE EVENT DATE: 20200414
